FAERS Safety Report 9735100 (Version 1)
Quarter: 2013Q4

REPORT INFORMATION
  Report Type: Spontaneous
  Country: US (occurrence: US)
  Receive Date: 20131206
  Receipt Date: 20131206
  Transmission Date: 20140711
  Serious: No
  Sender: FDA-Public Use
  Company Number: US-PFIZER INC-2013348267

PATIENT
  Sex: 0

DRUGS (4)
  1. CELEBREX [Suspect]
     Dosage: UNK
  2. PROCARDIA XL [Suspect]
     Dosage: UNK
  3. XALATAN [Suspect]
     Dosage: UNK
  4. VIAGRA [Suspect]
     Dosage: UNK

REACTIONS (1)
  - Memory impairment [Unknown]
